FAERS Safety Report 20359281 (Version 3)
Quarter: 2022Q1

REPORT INFORMATION
  Report Type: Report from Study
  Country: US (occurrence: US)
  Receive Date: 20220121
  Receipt Date: 20220210
  Transmission Date: 20220423
  Serious: Yes (Other)
  Sender: FDA-Public Use
  Company Number: US-ABBVIE-22K-163-4242006-00

PATIENT
  Sex: Female

DRUGS (1)
  1. SKYRIZI [Suspect]
     Active Substance: RISANKIZUMAB-RZAA
     Indication: Psoriasis
     Route: 058

REACTIONS (6)
  - Nephrolithiasis [Unknown]
  - Weight decreased [Recovering/Resolving]
  - Dehydration [Unknown]
  - Vomiting [Unknown]
  - Sinusitis [Recovering/Resolving]
  - Asthenia [Unknown]
